FAERS Safety Report 10816553 (Version 2)
Quarter: 2015Q1

REPORT INFORMATION
  Report Type: Spontaneous
  Country: US (occurrence: US)
  Receive Date: 20150218
  Receipt Date: 20150331
  Transmission Date: 20150721
  Serious: No
  Sender: FDA-Public Use
  Company Number: US-ASTRAZENECA-2015SE13692

PATIENT
  Sex: Female

DRUGS (1)
  1. SYMBICORT [Suspect]
     Active Substance: BUDESONIDE\FORMOTEROL FUMARATE DIHYDRATE
     Dosage: 160MCG/4.5MCG, 2 PUFFS BID
     Route: 055
     Dates: start: 201502

REACTIONS (4)
  - Wheezing [Unknown]
  - Intentional product misuse [Unknown]
  - Visual impairment [Unknown]
  - Drug dose omission [Unknown]
